FAERS Safety Report 19509278 (Version 1)
Quarter: 2021Q3

REPORT INFORMATION
  Report Type: Spontaneous
  Country: US (occurrence: US)
  Receive Date: 20210709
  Receipt Date: 20210709
  Transmission Date: 20211014
  Serious: Yes (Hospitalization, Other)
  Sender: FDA-Public Use
  Company Number: US-APOTEX-2021AP015808

PATIENT
  Age: 31 Year
  Sex: Male

DRUGS (1)
  1. ACETAMINOPHEN. [Suspect]
     Active Substance: ACETAMINOPHEN
     Indication: PRODUCT USED FOR UNKNOWN INDICATION
     Dosage: 125 GRAM
     Route: 048

REACTIONS (6)
  - Encephalopathy [Recovered/Resolved]
  - Toxicity to various agents [Recovered/Resolved]
  - Hepatic necrosis [Recovered/Resolved]
  - Overdose [Recovered/Resolved]
  - Analgesic drug level increased [Recovered/Resolved]
  - Acute hepatic failure [Recovered/Resolved]
